FAERS Safety Report 26125377 (Version 1)
Quarter: 2025Q4

REPORT INFORMATION
  Report Type: Spontaneous
  Country: US (occurrence: US)
  Receive Date: 20251205
  Receipt Date: 20251205
  Transmission Date: 20260117
  Serious: No
  Sender: Kenvue
  Company Number: US-KENVUE-20251103716

PATIENT
  Age: 95 Year
  Sex: Female

DRUGS (1)
  1. IMODIUM A-D [Suspect]
     Active Substance: LOPERAMIDE HYDROCHLORIDE
     Indication: Diarrhoea
     Dosage: FOR FIRST 30 ML THEN FOLLOWED DOSAGE ON THE OTHER  DAY IS 15ML I USE THE MEDICATION FOR ONCE A DAY ONLY, TOOK SEVERAL DAYS
     Route: 065
     Dates: start: 20251105

REACTIONS (1)
  - Product administration error [Unknown]

NARRATIVE: CASE EVENT DATE: 20251105
